FAERS Safety Report 7160408-0 (Version None)
Quarter: 2010Q4

REPORT INFORMATION
  Report Type: 
  Country: None (occurrence: None)
  Receive Date: 20101214
  Receipt Date: 20091209
  Transmission Date: 20110411
  Serious: No
  Sender: FDA-Public Use
  Company Number: US-AMGEN-KDL379331

PATIENT

DRUGS (12)
  1. ENBREL [Suspect]
     Indication: PRODUCT USED FOR UNKNOWN INDICATION
     Dosage: 50 MG, QWK
     Route: 058
  2. ALPRAZOLAM [Concomitant]
     Dosage: 25 MG, UNK
  3. HYDROXYCHLOROQUINE SULFATE [Concomitant]
     Dosage: 200 MG, UNK
  4. GLIMEPIRIDE [Concomitant]
     Dosage: 1 MG, UNK
  5. PROPRANOLOL HCL [Concomitant]
     Dosage: 120 MG, UNK
  6. METHOTREXATE [Concomitant]
     Dosage: 2.5 MG, UNK
  7. PREDNISONE [Concomitant]
     Dosage: 2.5 MG, UNK
  8. DICLOFENAC SODIUM [Concomitant]
     Dosage: UNK UNK, UNK
  9. ACETAMINOPHEN AND HYDROCODONE BITARTRATE [Concomitant]
     Dosage: UNK UNK, UNK
  10. ESOMEPRAZOLE MAGNESIUM [Concomitant]
     Dosage: 20 MG, UNK
  11. LANSOPRAZOLE [Concomitant]
     Dosage: 30 MG, UNK
  12. MORPHINE SULFATE [Concomitant]
     Dosage: 30 MG, UNK

REACTIONS (1)
  - CONTUSION [None]
